FAERS Safety Report 9961384 (Version 1)
Quarter: 2014Q1

REPORT INFORMATION
  Report Type: Spontaneous
  Country: CA (occurrence: CA)
  Receive Date: 20140305
  Receipt Date: 20140305
  Transmission Date: 20141002
  Serious: Yes (Hospitalization)
  Sender: FDA-Public Use
  Company Number: CA-JNJFOC-20140214786

PATIENT
  Age: 49 Year
  Sex: Female
  Weight: 97.6 kg

DRUGS (14)
  1. CAELYX (DOXORUBICIN HYDROCHLORIDE) [Suspect]
     Indication: OVARIAN CANCER
     Route: 042
     Dates: start: 20140113
  2. EC145 [Suspect]
     Indication: OVARIAN CANCER
     Dosage: DAY 1,3,5,15,17,19
     Route: 042
     Dates: start: 20140113, end: 20140127
  3. PLACEBO [Suspect]
     Indication: OVARIAN CANCER
     Dosage: DAY 1,3,5,15,17,19
     Route: 042
     Dates: start: 20140113, end: 20140127
  4. EC20 [Suspect]
     Indication: SINGLE PHOTON EMISSION COMPUTERISED TOMOGRAM
     Dosage: 24.7 MILLICURIES
     Route: 042
     Dates: start: 20131227, end: 20131227
  5. FOLIC ACID [Suspect]
     Indication: SINGLE PHOTON EMISSION COMPUTERISED TOMOGRAM
     Dosage: 24.7 MILLICURIES
     Route: 042
     Dates: start: 20131227, end: 20131227
  6. SENOKOT [Concomitant]
     Indication: CONSTIPATION
     Route: 048
  7. LACTULOSE [Concomitant]
     Indication: CONSTIPATION
     Route: 048
     Dates: start: 201210
  8. LEVOFLOXACIN [Concomitant]
     Indication: UPPER RESPIRATORY TRACT INFECTION
     Route: 048
     Dates: start: 20131219, end: 20131225
  9. DEXAMETHASONE [Concomitant]
     Indication: PROPHYLAXIS OF NAUSEA AND VOMITING
     Route: 048
     Dates: start: 20140113
  10. ONDANSETRON [Concomitant]
     Indication: PROPHYLAXIS OF NAUSEA AND VOMITING
     Route: 048
     Dates: start: 20140113
  11. DOMPERIDONE [Concomitant]
     Indication: NAUSEA
     Route: 048
     Dates: start: 20140113
  12. PANTOLOC [Concomitant]
     Indication: NAUSEA
     Route: 048
     Dates: start: 20140113
  13. PARACETAMOL [Concomitant]
     Indication: ABDOMINAL PAIN
     Dosage: 2 IN 4 HOURS
     Route: 048
     Dates: start: 20140113
  14. STEMETIL [Concomitant]
     Indication: NAUSEA
     Dosage: 2 IN 4 HOURS
     Route: 048

REACTIONS (2)
  - Abdominal pain upper [Recovered/Resolved]
  - Vomiting [Unknown]
